FAERS Safety Report 8853074 (Version 1)
Quarter: 2012Q4

REPORT INFORMATION
  Report Type: 
  Country: IT (occurrence: IT)
  Receive Date: 20121022
  Receipt Date: 20121022
  Transmission Date: 20130627
  Serious: Yes (Other)
  Sender: FDA-Public Use
  Company Number: PHHY2012IT093293

PATIENT
  Age: 69 Year
  Sex: Male

DRUGS (1)
  1. AMOXICILLIN [Suspect]
     Indication: RESPIRATORY TRACT INFECTION
     Dosage: 1 DF, Total
     Route: 048
     Dates: start: 20121003, end: 20121003

REACTIONS (2)
  - Nasal congestion [Recovering/Resolving]
  - Pruritus [Recovering/Resolving]
